FAERS Safety Report 16988773 (Version 1)
Quarter: 2019Q4

REPORT INFORMATION
  Report Type: Spontaneous
  Country: US (occurrence: US)
  Receive Date: 20190919
  Receipt Date: 20190919
  Transmission Date: 20200122
  Serious: No
  Sender: FDA-Public Use
  Company Number: None

PATIENT
  Age: 42 Year
  Sex: Female
  Weight: 70.31 kg

DRUGS (1)
  1. WIXELA INHUB [Suspect]
     Active Substance: FLUTICASONE PROPIONATE\SALMETEROL XINAFOATE
     Indication: ASTHMA
     Dosage: ?          OTHER DOSE:1 PUFF;?
     Route: 055
     Dates: start: 201905

REACTIONS (2)
  - Cough [None]
  - Dyspnoea [None]

NARRATIVE: CASE EVENT DATE: 20190521
